FAERS Safety Report 10477955 (Version 2)
Quarter: 2014Q3

REPORT INFORMATION
  Report Type: Report from Study
  Country: None (occurrence: BE)
  Receive Date: 20140926
  Receipt Date: 20140926
  Transmission Date: 20150326
  Serious: Yes (Death, Hospitalization)
  Sender: FDA-Public Use
  Company Number: BE-CELGENE-013-50794-14091756

PATIENT
  Age: 60 Year
  Sex: Male

DRUGS (4)
  1. VIDAZA [Suspect]
     Active Substance: AZACITIDINE
     Indication: MYELODYSPLASTIC SYNDROME
  2. VIDAZA [Suspect]
     Active Substance: AZACITIDINE
     Indication: ACUTE MYELOID LEUKAEMIA
     Route: 065
     Dates: end: 20140519
  3. DONOR LYMPHOCYTE INFUSION [Suspect]
     Active Substance: UNSPECIFIED INGREDIENT
     Indication: MYELODYSPLASTIC SYNDROME
  4. DONOR LYMPHOCYTE INFUSION [Suspect]
     Active Substance: UNSPECIFIED INGREDIENT
     Indication: ACUTE MYELOID LEUKAEMIA
     Route: 065
     Dates: start: 20140123, end: 20140123

REACTIONS (5)
  - Anal fissure [Not Recovered/Not Resolved]
  - Multi-organ failure [Fatal]
  - Proctalgia [Not Recovered/Not Resolved]
  - Haemorrhoids [Not Recovered/Not Resolved]
  - Acute respiratory distress syndrome [Not Recovered/Not Resolved]

NARRATIVE: CASE EVENT DATE: 20140814
